FAERS Safety Report 13194634 (Version 1)
Quarter: 2017Q1

REPORT INFORMATION
  Report Type: Spontaneous
  Country: US (occurrence: US)
  Receive Date: 20170207
  Receipt Date: 20170207
  Transmission Date: 20170428
  Serious: No
  Sender: FDA-Public Use
  Company Number: US-JAZZ-2016-US-011040

PATIENT
  Age: 58 Year
  Sex: Female

DRUGS (6)
  1. PRIALT [Suspect]
     Active Substance: ZICONOTIDE ACETATE
     Indication: POST LAMINECTOMY SYNDROME
  2. MORPHINE SULF [Suspect]
     Active Substance: MORPHINE SULFATE
     Indication: PAIN
     Dosage: 0.365 MG, QH
     Route: 037
  3. PRIALT [Suspect]
     Active Substance: ZICONOTIDE ACETATE
     Indication: PAIN
     Dosage: 0.137 ?G, QH
     Route: 037
  4. BUPIVACAINE. [Suspect]
     Active Substance: BUPIVACAINE
     Indication: PAIN
     Dosage: 0.313 MG, QH
     Route: 037
  5. MORPHINE SULF [Suspect]
     Active Substance: MORPHINE SULFATE
     Indication: POST LAMINECTOMY SYNDROME
  6. BUPIVACAINE. [Suspect]
     Active Substance: BUPIVACAINE
     Indication: POST LAMINECTOMY SYNDROME

REACTIONS (6)
  - Gingival pain [Unknown]
  - Feeling jittery [Unknown]
  - Influenza like illness [Unknown]
  - Diarrhoea [Unknown]
  - Device issue [Recovered/Resolved]
  - Nausea [Unknown]

NARRATIVE: CASE EVENT DATE: 20160607
